FAERS Safety Report 6057685-6 (Version None)
Quarter: 2009Q1

REPORT INFORMATION
  Report Type: 
  Country: None (occurrence: None)
  Receive Date: 20090129
  Receipt Date: 20080311
  Transmission Date: 20090719
  Serious: No
  Sender: FDA-Public Use
  Company Number: A0714602A

PATIENT
  Age: 60 Year
  Sex: Female

DRUGS (2)
  1. MEPRON [Suspect]
     Indication: DRUG USE FOR UNKNOWN INDICATION
     Dosage: 750MG TWICE PER DAY
     Route: 048
     Dates: start: 20080216
  2. AZITHROMYCIN [Concomitant]

REACTIONS (2)
  - FAECES HARD [None]
  - WEIGHT INCREASED [None]
